FAERS Safety Report 7100292-4 (Version None)
Quarter: 2010Q4

REPORT INFORMATION
  Report Type: 
  Country: None (occurrence: None)
  Receive Date: 20101112
  Receipt Date: 20101103
  Transmission Date: 20110411
  Serious: Yes (Other)
  Sender: FDA-Public Use
  Company Number: GB-AMGEN-QUU427435

PATIENT

DRUGS (3)
  1. ARANESP [Suspect]
     Indication: RENAL FAILURE CHRONIC
     Dosage: UNK UNK, UNK
     Dates: start: 20061120, end: 20071204
  2. ERYTHROPOIETIN HUMAN [Suspect]
     Indication: RENAL FAILURE CHRONIC
     Dosage: 30000 IU, 3 TIMES/WK
     Route: 058
     Dates: start: 20070220
  3. BLOOD CELLS, PACKED HUMAN [Concomitant]

REACTIONS (4)
  - DRUG INEFFECTIVE [None]
  - HYPERPARATHYROIDISM [None]
  - LOWER RESPIRATORY TRACT INFECTION [None]
  - TREATMENT NONCOMPLIANCE [None]
